FAERS Safety Report 12754369 (Version 3)
Quarter: 2016Q3

REPORT INFORMATION
  Report Type: Spontaneous
  Country: CY (occurrence: CY)
  Receive Date: 20160916
  Receipt Date: 20160928
  Transmission Date: 20161109
  Serious: Yes (Death, Hospitalization)
  Sender: FDA-Public Use
  Company Number: PHHY2016CY124327

PATIENT
  Age: 76 Year
  Sex: Male

DRUGS (6)
  1. TAFINLAR [Suspect]
     Active Substance: DABRAFENIB MESYLATE
     Dosage: 2 DF, QD
     Route: 048
     Dates: start: 20160811, end: 20160819
  2. TAFINLAR [Suspect]
     Active Substance: DABRAFENIB MESYLATE
     Indication: METASTATIC MALIGNANT MELANOMA
     Dosage: 3 DF, QD
     Route: 048
     Dates: start: 20160801, end: 20160806
  3. LORIVAL [Concomitant]
     Indication: MENTAL DISORDER
     Dosage: 1 MG, BID
     Route: 048
  4. HALOXEN [Concomitant]
     Indication: MENTAL DISORDER
     Dosage: 5 MG, BID
     Route: 048
  5. LAMOTRINE [Concomitant]
     Indication: MENTAL DISORDER
     Dosage: 100 MG, BID
     Route: 048
  6. TAFINLAR [Suspect]
     Active Substance: DABRAFENIB MESYLATE
     Indication: MALIGNANT MELANOMA
     Dosage: 2 DF, BID
     Route: 048
     Dates: start: 20160704, end: 20160726

REACTIONS (8)
  - Fatigue [Recovering/Resolving]
  - Abasia [Recovering/Resolving]
  - Abasia [Recovered/Resolved]
  - Death [Fatal]
  - Decreased appetite [Recovering/Resolving]
  - Fatigue [Recovered/Resolved]
  - Fatigue [Recovered/Resolved]
  - Decreased appetite [Recovered/Resolved]

NARRATIVE: CASE EVENT DATE: 20160718
